FAERS Safety Report 4413502-9 (Version None)
Quarter: 2004Q3

REPORT INFORMATION
  Report Type: 
  Country: None (occurrence: None)
  Receive Date: 20040728
  Receipt Date: 20040712
  Transmission Date: 20050211
  Serious: Yes (Death, Hospitalization, Other)
  Sender: FDA-Public Use
  Company Number: USA040465955

PATIENT
  Age: 62 Year
  Sex: Female

DRUGS (3)
  1. FORTEO [Suspect]
     Indication: OSTEOPOROSIS
     Dosage: 20 UG DAY
     Dates: start: 20030519, end: 20031001
  2. ENBREL [Concomitant]
  3. PREDNISONE TAB [Concomitant]

REACTIONS (5)
  - MYOCARDIAL INFARCTION [None]
  - PEPTIC ULCER PERFORATION [None]
  - PERITONITIS [None]
  - PNEUMONIA [None]
  - RENAL FAILURE [None]
